FAERS Safety Report 25376881 (Version 1)
Quarter: 2025Q2

REPORT INFORMATION
  Report Type: Spontaneous
  Country: US (occurrence: US)
  Receive Date: 20250530
  Receipt Date: 20250530
  Transmission Date: 20250716
  Serious: No
  Sender: CELLTRION
  Company Number: US-CELLTRION INC.-2025US014995

PATIENT

DRUGS (2)
  1. VEGZELMA [Suspect]
     Active Substance: BEVACIZUMAB-ADCD
     Indication: Product used for unknown indication
     Dosage: 505 MG, EVERY 2 WEEKS
     Route: 042
  2. VEGZELMA [Suspect]
     Active Substance: BEVACIZUMAB-ADCD
     Dosage: 505 MG, EVERY 2 WEEKS
     Route: 042

REACTIONS (1)
  - Therapy cessation [Unknown]

NARRATIVE: CASE EVENT DATE: 20250514
